FAERS Safety Report 15704989 (Version 2)
Quarter: 2019Q1

REPORT INFORMATION
  Report Type: Spontaneous
  Country: US (occurrence: US)
  Receive Date: 20181210
  Receipt Date: 20190215
  Transmission Date: 20190417
  Serious: Yes (Other)
  Sender: FDA-Public Use
  Company Number: US-SA-2018SA332434

PATIENT
  Age: 70 Year
  Sex: Female
  Weight: 98 kg

DRUGS (15)
  1. TAXOTERE [Suspect]
     Active Substance: DOCETAXEL
     Dosage: 150 MG, QW
     Route: 042
     Dates: start: 20141016, end: 20141016
  2. ULTRAM [Concomitant]
     Active Substance: TRAMADOL HYDROCHLORIDE
     Dosage: 50 MG, QD
     Route: 065
  3. VITAMIN B12 [Concomitant]
     Active Substance: CYANOCOBALAMIN
     Dosage: UNK
     Route: 065
     Dates: start: 2008
  4. AMITRIPTYLINE [Concomitant]
     Active Substance: AMITRIPTYLINE
     Dosage: 25 MG, QD
     Route: 065
  5. BYSTOLIC [Concomitant]
     Active Substance: NEBIVOLOL HYDROCHLORIDE
     Dosage: 5 MG, QD
     Route: 065
  6. HUMALOG [Concomitant]
     Active Substance: INSULIN LISPRO
     Dosage: UNK
     Route: 065
  7. ASPIRIN [ACETYLSALICYLIC ACID] [Concomitant]
     Active Substance: ASPIRIN
     Dosage: 81 MG, QD
     Route: 065
  8. LYRICA [Concomitant]
     Active Substance: PREGABALIN
     Dosage: 150 MG, QD
     Route: 065
  9. LANTUS [Concomitant]
     Active Substance: INSULIN GLARGINE
     Dosage: 40 U, BID, MORNING + EVENING
     Route: 065
  10. VITAMIN D [ERGOCALCIFEROL] [Concomitant]
     Active Substance: ERGOCALCIFEROL
     Dosage: UNK
     Route: 065
     Dates: start: 2008
  11. VALTREX [Concomitant]
     Active Substance: VALACYCLOVIR HYDROCHLORIDE
     Dosage: 500 MG, QD
     Route: 065
  12. NOVOLIN [Concomitant]
     Active Substance: INSULIN HUMAN
     Dosage: UNK
     Route: 065
     Dates: start: 2008
  13. BABY ASPIRIN [Concomitant]
     Active Substance: ASPIRIN
     Dosage: UNK
     Route: 065
     Dates: start: 2008
  14. TAXOTERE [Suspect]
     Active Substance: DOCETAXEL
     Indication: BREAST CANCER FEMALE
     Dosage: 150 MG, QW
     Route: 042
     Dates: start: 20140218, end: 20140218
  15. LOSARTAN. [Concomitant]
     Active Substance: LOSARTAN
     Dosage: 50 MG, QD
     Route: 065

REACTIONS (2)
  - Alopecia [Not Recovered/Not Resolved]
  - Psychological trauma [Unknown]

NARRATIVE: CASE EVENT DATE: 201312
